FAERS Safety Report 8682218 (Version 6)
Quarter: 2013Q2

REPORT INFORMATION
  Report Type: Report from Study
  Country: DE (occurrence: DE)
  Receive Date: 20120725
  Receipt Date: 20130611
  Transmission Date: 20140414
  Serious: Yes (Hospitalization)
  Sender: FDA-Public Use
  Company Number: DE-ABBOTT-12P-062-0956569-00

PATIENT
  Age: 49 Year
  Sex: Male

DRUGS (4)
  1. HUMIRA [Suspect]
     Indication: CROHN^S DISEASE
     Route: 058
     Dates: start: 20120606, end: 20120620
  2. HUMIRA [Suspect]
     Dates: start: 2012, end: 20121105
  3. HUMIRA [Suspect]
     Dates: end: 20130110
  4. HUMIRA [Suspect]
     Route: 058
     Dates: start: 20130508

REACTIONS (6)
  - Procedural site reaction [Recovered/Resolved]
  - Pyrexia [Recovered/Resolved]
  - Chills [Recovered/Resolved]
  - Enterostomy [Recovered/Resolved]
  - Fistula [Recovered/Resolved]
  - Inflammation [Recovered/Resolved]
